FAERS Safety Report 14860149 (Version 1)
Quarter: 2018Q2

REPORT INFORMATION
  Report Type: Spontaneous
  Country: US (occurrence: US)
  Receive Date: 20180421
  Receipt Date: 20180421
  Transmission Date: 20180711
  Serious: No
  Sender: FDA-Public Use
  Company Number: None

PATIENT
  Age: 45 Year
  Sex: Male
  Weight: 76.84 kg

DRUGS (3)
  1. ZOLOFT [Concomitant]
     Active Substance: SERTRALINE HYDROCHLORIDE
  2. NORCO [Concomitant]
     Active Substance: ACETAMINOPHEN\HYDROCODONE BITARTRATE
  3. CISPLATIN. [Suspect]
     Active Substance: CISPLATIN
     Dates: end: 20180131

REACTIONS (8)
  - Nausea [None]
  - Decreased appetite [None]
  - Vomiting [None]
  - Hypotension [None]
  - Fatigue [None]
  - Dizziness [None]
  - Somnolence [None]
  - Loss of personal independence in daily activities [None]

NARRATIVE: CASE EVENT DATE: 20180328
